FAERS Safety Report 23034525 (Version 1)
Quarter: 2023Q4

REPORT INFORMATION
  Report Type: Report from Study
  Country: US (occurrence: US)
  Receive Date: 20231005
  Receipt Date: 20231005
  Transmission Date: 20240110
  Serious: Yes (Hospitalization)
  Sender: FDA-Public Use
  Company Number: US-BAUSCH-BL-2023-013472

PATIENT
  Age: 62 Year
  Sex: Female
  Weight: 66.738 kg

DRUGS (2)
  1. SILIQ [Suspect]
     Active Substance: BRODALUMAB
     Indication: Juvenile psoriatic arthritis
     Dosage: INJECT 210 MG SUBCUTANEOUSLY AT WEEK 0, 1 AND 2 AS DIRECTED
     Route: 058
     Dates: start: 202308
  2. SILIQ [Suspect]
     Active Substance: BRODALUMAB
     Indication: Psoriasis

REACTIONS (3)
  - Cholelithiasis [Unknown]
  - Colitis [Unknown]
  - Psoriasis [Not Recovered/Not Resolved]

NARRATIVE: CASE EVENT DATE: 20230101
